FAERS Safety Report 17821287 (Version 3)
Quarter: 2020Q4

REPORT INFORMATION
  Report Type: Spontaneous
  Country: US (occurrence: US)
  Receive Date: 20200525
  Receipt Date: 20201111
  Transmission Date: 20210113
  Serious: Yes (Hospitalization, Other)
  Sender: FDA-Public Use
  Company Number: US-ROCHE-2565947

PATIENT
  Age: 68 Year
  Sex: Female
  Weight: 108.96 kg

DRUGS (7)
  1. RAMIPRIL. [Concomitant]
     Active Substance: RAMIPRIL
     Indication: BLOOD PRESSURE MEASUREMENT
     Dosage: BLOOD PRESSURE
     Route: 048
  2. KADCYLA [Suspect]
     Active Substance: ADO-TRASTUZUMAB EMTANSINE
     Indication: NEOPLASM MALIGNANT
     Dosage: 1 INFUSION EVERY 3 WEEKS SOMETIMES 4 WEEKS; ONGOING: NO
     Route: 042
     Dates: start: 201909
  3. KADCYLA [Suspect]
     Active Substance: ADO-TRASTUZUMAB EMTANSINE
     Indication: HER2 POSITIVE BREAST CANCER
     Dosage: 1 INFUSION EVERY 3 WEEKS SOMETIMES 4 WEEKS; ONGOING: YES
     Route: 042
  4. POTASSIUM [Concomitant]
     Active Substance: POTASSIUM
  5. KADCYLA [Suspect]
     Active Substance: ADO-TRASTUZUMAB EMTANSINE
     Dosage: UNKNOWN STARTING DOSE ONGOING: NO
     Route: 042
     Dates: start: 201909, end: 20200304
  6. MELOXICAM. [Concomitant]
     Active Substance: MELOXICAM
     Indication: PAIN
     Route: 048
  7. METOPROLOL. [Concomitant]
     Active Substance: METOPROLOL
     Indication: ATRIAL FIBRILLATION
     Route: 048

REACTIONS (21)
  - Arthralgia [Not Recovered/Not Resolved]
  - Red blood cell count decreased [Unknown]
  - Spinal cord abscess [Recovering/Resolving]
  - Fatigue [Unknown]
  - Diarrhoea [Unknown]
  - Asthenia [Not Recovered/Not Resolved]
  - Bone pain [Not Recovered/Not Resolved]
  - Dyspnoea [Recovered/Resolved]
  - Thrombocytopenia [Not Recovered/Not Resolved]
  - Peripheral swelling [Recovered/Resolved]
  - Feeding disorder [Unknown]
  - Cardiac failure [Not Recovered/Not Resolved]
  - Blood potassium decreased [Unknown]
  - Blood pressure measurement [Unknown]
  - Neuropathy peripheral [Not Recovered/Not Resolved]
  - Chest discomfort [Not Recovered/Not Resolved]
  - White blood cell count decreased [Unknown]
  - Platelet count decreased [Not Recovered/Not Resolved]
  - Weight decreased [Not Recovered/Not Resolved]
  - Weight increased [Not Recovered/Not Resolved]
  - Renal function test abnormal [Recovering/Resolving]

NARRATIVE: CASE EVENT DATE: 202005
